FAERS Safety Report 6410894-6 (Version None)
Quarter: 2009Q4

REPORT INFORMATION
  Report Type: 
  Country: None (occurrence: None)
  Receive Date: 20091022
  Receipt Date: 20090814
  Transmission Date: 20100525
  Serious: Yes (Hospitalization)
  Sender: FDA-Public Use
  Company Number: NL-ROCHE-650505

PATIENT
  Age: 58 Year
  Sex: Female

DRUGS (3)
  1. XELODA [Suspect]
     Indication: RECTAL CANCER METASTATIC
     Dosage: STARTED 2 WEEKS AFTER LAST TREATMENT WITH FOLFOX
     Route: 048
     Dates: start: 20080601
  2. AVASTIN [Suspect]
     Indication: RECTAL CANCER METASTATIC
     Route: 042
     Dates: start: 20080501
  3. OXALIPLATIN [Suspect]
     Indication: RECTAL CANCER METASTATIC
     Dosage: STARTED 2 WEEKS AFTER LAST TREATMENT WITH FOLFOX
     Route: 065
     Dates: start: 20080501

REACTIONS (1)
  - GASTROINTESTINAL TOXICITY [None]
